FAERS Safety Report 6715409-0 (Version None)
Quarter: 2010Q2

REPORT INFORMATION
  Report Type: 
  Country: None (occurrence: None)
  Receive Date: 20100507
  Receipt Date: 20100426
  Transmission Date: 20101027
  Serious: Yes (Other)
  Sender: FDA-Public Use
  Company Number: CN-PFIZER INC-2010051927

PATIENT
  Age: 15 Year
  Sex: Female

DRUGS (5)
  1. ZELDOX [Suspect]
     Indication: SCHIZOPHRENIA
     Dosage: 120 MG, DAILY
     Route: 048
     Dates: start: 20090901, end: 20091201
  2. ZELDOX [Suspect]
     Dosage: 80 MG, DAILY
     Route: 048
     Dates: start: 20091201, end: 20100320
  3. ZELDOX [Suspect]
     Dosage: 60 MG, DAILY
     Route: 048
     Dates: start: 20100320
  4. CLOZAPINE [Concomitant]
     Indication: SCHIZOPHRENIA
     Dosage: UNK
     Route: 048
     Dates: start: 20090901, end: 20090101
  5. BENZHEXOL HYDROCHLORIDE [Concomitant]
     Dosage: UNK
     Route: 048
     Dates: start: 20090901

REACTIONS (1)
  - SINUS ARRHYTHMIA [None]
